FAERS Safety Report 19455256 (Version 1)
Quarter: 2021Q2

REPORT INFORMATION
  Report Type: Spontaneous
  Country: US (occurrence: US)
  Receive Date: 20210623
  Receipt Date: 20210623
  Transmission Date: 20210717
  Serious: Yes (Other)
  Sender: FDA-Public Use
  Company Number: US-ROCHE-2708488

PATIENT
  Age: 28 Week
  Sex: Female

DRUGS (1)
  1. VALCYTE [Suspect]
     Active Substance: VALGANCICLOVIR HYDROCHLORIDE
     Indication: GENITAL INFECTION VIRAL
     Dosage: ONGOING : YES
     Route: 048
     Dates: start: 20200810

REACTIONS (4)
  - Platelet count decreased [Unknown]
  - Flatulence [Unknown]
  - Neutrophil count decreased [Unknown]
  - Expired product administered [Unknown]

NARRATIVE: CASE EVENT DATE: 202009
